FAERS Safety Report 19024386 (Version 1)
Quarter: 2021Q1

REPORT INFORMATION
  Report Type: Report from Study
  Country: IT (occurrence: IT)
  Receive Date: 20210318
  Receipt Date: 20210318
  Transmission Date: 20210420
  Serious: Yes (Death, Other)
  Sender: FDA-Public Use
  Company Number: IT-ADIENNEP-2021AD000158

PATIENT
  Age: 43 Year
  Sex: Male

DRUGS (2)
  1. THIOTEPA. [Suspect]
     Active Substance: THIOTEPA
     Indication: ALLOGENIC STEM CELL TRANSPLANTATION
     Dosage: 3.75 TO 5 MG/KG/DAY FOR 2 DAYS ()
     Dates: start: 2017, end: 2017
  2. FLUDARABINE [Suspect]
     Active Substance: FLUDARABINE PHOSPHATE
     Indication: ALLOGENIC STEM CELL TRANSPLANTATION
     Dosage: 40?50 MG/M2/DAY ()
     Dates: start: 2017, end: 2017

REACTIONS (3)
  - Pneumonia [Fatal]
  - Chronic graft versus host disease [Fatal]
  - Febrile neutropenia [Unknown]
